FAERS Safety Report 5050212-1 (Version None)
Quarter: 2006Q3

REPORT INFORMATION
  Report Type: 
  Country: None (occurrence: None)
  Receive Date: 20060713
  Receipt Date: 20050823
  Transmission Date: 20061208
  Serious: No
  Sender: FDA-Public Use
  Company Number: US-BRISTOL-MYERS SQUIBB COMPANY-13092598

PATIENT
  Sex: Female

DRUGS (1)
  1. SINEMET [Suspect]
     Indication: RESTLESS LEGS SYNDROME
     Route: 048

REACTIONS (2)
  - AGITATION [None]
  - RESTLESSNESS [None]
